FAERS Safety Report 25264174 (Version 1)
Quarter: 2025Q2

REPORT INFORMATION
  Report Type: Spontaneous
  Country: CN (occurrence: CN)
  Receive Date: 20250502
  Receipt Date: 20250502
  Transmission Date: 20250717
  Serious: Yes (Other)
  Sender: NOVARTIS
  Company Number: CN-002147023-NVSC2025CN070554

PATIENT
  Age: 60 Year
  Sex: Female
  Weight: 67 kg

DRUGS (3)
  1. TRAMETINIB [Suspect]
     Active Substance: TRAMETINIB
     Indication: Neoplasm
     Dosage: 2 MG, QD
     Route: 048
     Dates: start: 20240902, end: 20250424
  2. TRAMETINIB [Suspect]
     Active Substance: TRAMETINIB
     Indication: Lung adenocarcinoma
  3. DABRAFENIB [Suspect]
     Active Substance: DABRAFENIB
     Indication: Neoplasm
     Dosage: 150 MG, BID
     Route: 048
     Dates: start: 20240902, end: 20250417

REACTIONS (1)
  - Pulmonary thrombosis [Unknown]

NARRATIVE: CASE EVENT DATE: 20250417
